FAERS Safety Report 5075200-0 (Version None)
Quarter: 2006Q3

REPORT INFORMATION
  Report Type: 
  Country: None (occurrence: None)
  Receive Date: 20060809
  Receipt Date: 20060704
  Transmission Date: 20061208
  Serious: Yes (Hospitalization)
  Sender: FDA-Public Use
  Company Number: FR-BAYER-200610638BFR

PATIENT
  Age: 50 Year
  Sex: Male

DRUGS (4)
  1. CIFLOX [Suspect]
     Indication: INTERVERTEBRAL DISCITIS
     Route: 065
     Dates: start: 20060224, end: 20060331
  2. RIFADIN [Suspect]
     Indication: INTERVERTEBRAL DISCITIS
     Route: 065
     Dates: start: 20060224, end: 20060331
  3. LOVENOX [Suspect]
     Indication: UNEVALUABLE EVENT
     Route: 065
     Dates: start: 20060224, end: 20060331
  4. COLCHICINE [Concomitant]
     Indication: GOUT
     Route: 048
     Dates: start: 20060303, end: 20060318

REACTIONS (5)
  - CONDITION AGGRAVATED [None]
  - GOUT [None]
  - LEUKOPENIA [None]
  - LYMPHOPENIA [None]
  - NEUTROPENIA [None]
